FAERS Safety Report 8614195-7 (Version None)
Quarter: 2012Q3

REPORT INFORMATION
  Report Type: 
  Country: None (occurrence: None)
  Receive Date: 20120823
  Receipt Date: 20120813
  Transmission Date: 20120928
  Serious: Yes (Hospitalization, Disabling, Other)
  Sender: FDA-Public Use
  Company Number: US-009507513-1104USA00702

PATIENT

DRUGS (2)
  1. FOSAMAX PLUS D [Suspect]
     Indication: OSTEOPENIA
     Dosage: 1 DF, QW
     Route: 048
     Dates: start: 20060905, end: 20100801
  2. FOSAMAX [Suspect]
     Indication: OSTEOPENIA
     Dosage: 1 DF, QW
     Route: 048
     Dates: start: 20020101, end: 20100101

REACTIONS (30)
  - PYREXIA [None]
  - HIP FRACTURE [None]
  - IRRITABLE BOWEL SYNDROME [None]
  - LIPOMA [None]
  - INTRAMEDULLARY ROD INSERTION [None]
  - FOOT FRACTURE [None]
  - OSTEOPOROSIS [None]
  - GASTROOESOPHAGEAL REFLUX DISEASE [None]
  - DEEP VEIN THROMBOSIS [None]
  - CELLULITIS [None]
  - FIBULA FRACTURE [None]
  - FRACTURE DELAYED UNION [None]
  - LACERATION [None]
  - FEMUR FRACTURE [None]
  - BONE DENSITY DECREASED [None]
  - HYPERLIPIDAEMIA [None]
  - MUSCLE STRAIN [None]
  - JOINT DISLOCATION [None]
  - HEAD INJURY [None]
  - ANAEMIA POSTOPERATIVE [None]
  - DIVERTICULUM [None]
  - RIB FRACTURE [None]
  - ATRIAL FIBRILLATION [None]
  - JOINT EFFUSION [None]
  - THROMBOSED VARICOSE VEIN [None]
  - CHRONIC OBSTRUCTIVE PULMONARY DISEASE [None]
  - IMPAIRED HEALING [None]
  - SCOLIOSIS [None]
  - FALL [None]
  - OSTEOARTHRITIS [None]
